FAERS Safety Report 26016542 (Version 3)
Quarter: 2025Q4

REPORT INFORMATION
  Report Type: Report from Study
  Country: CN (occurrence: CN)
  Receive Date: 20251110
  Receipt Date: 20251231
  Transmission Date: 20260118
  Serious: Yes (Other)
  Sender: ROCHE
  Company Number: CN-ROCHE-10000339148

PATIENT
  Age: 4 Year
  Sex: Male

DRUGS (1)
  1. HEMLIBRA [Suspect]
     Active Substance: EMICIZUMAB-KXWH
     Indication: Factor VIII deficiency
     Route: 058

REACTIONS (5)
  - Breath sounds abnormal [Unknown]
  - Joint effusion [Unknown]
  - Haemarthrosis [Unknown]
  - Joint effusion [Unknown]
  - Dermatitis [Unknown]

NARRATIVE: CASE EVENT DATE: 20250715
